FAERS Safety Report 24295568 (Version 1)
Quarter: 2024Q3

REPORT INFORMATION
  Report Type: Spontaneous
  Country: US (occurrence: US)
  Receive Date: 20240908
  Receipt Date: 20240908
  Transmission Date: 20241016
  Serious: Yes (Other)
  Sender: IOVANCE BIOTHERAPEUTICS
  Company Number: US-IOVANCE BIOTHERAPEUTICS, INC-2024IOV000069

PATIENT

DRUGS (1)
  1. AMTAGVI [Suspect]
     Active Substance: LIFILEUCEL
     Indication: Malignant melanoma
     Dosage: UNK
     Route: 042

REACTIONS (4)
  - Pulmonary thrombosis [Unknown]
  - Eye haemorrhage [Unknown]
  - Platelet count decreased [Unknown]
  - Headache [Unknown]

NARRATIVE: CASE EVENT DATE: 20240701
